FAERS Safety Report 4443337-2 (Version None)
Quarter: 2004Q3

REPORT INFORMATION
  Report Type: 
  Country: None (occurrence: None)
  Receive Date: 20040907
  Receipt Date: 20040907
  Transmission Date: 20050211
  Serious: Yes (Hospitalization)
  Sender: FDA-Public Use
  Company Number: None

PATIENT
  Age: 75 Year
  Sex: Male
  Weight: 63.5 kg

DRUGS (15)
  1. TRIMETHOPRIM [Suspect]
  2. FELODIPINE [Concomitant]
  3. DEXAMETHASONE [Concomitant]
  4. TERAZOSIN HCL [Concomitant]
  5. ARTIFICAL TERARS POLYVINYL ALCHOL [Concomitant]
  6. OMEPRAZOLE [Concomitant]
  7. MAGNESIUM OXIDE [Concomitant]
  8. FERROUS SO4 [Concomitant]
  9. DOCUSATE NA [Concomitant]
  10. ACETAMINOPHEN [Concomitant]
  11. FUROSEMIDE [Concomitant]
  12. SULFAMETHOXAZOLE + TRIMETHOPRIM [Concomitant]
  13. SODIUM POLYSTRENE SULFONATE SUSP [Concomitant]
  14. HUMULIN R [Concomitant]
  15. DEXTROSE 50% [Concomitant]

REACTIONS (1)
  - HYPERKALAEMIA [None]
